FAERS Safety Report 23711788 (Version 1)
Quarter: 2024Q2

REPORT INFORMATION
  Report Type: Spontaneous
  Country: US (occurrence: None)
  Receive Date: 20240404
  Receipt Date: 20240404
  Transmission Date: 20240716
  Serious: Yes (Other)
  Sender: FDA-Public Use
  Company Number: None

PATIENT
  Age: 56 Year
  Sex: Male
  Weight: 112.4 kg

DRUGS (1)
  1. GAMMAKED [Suspect]
     Active Substance: HUMAN IMMUNOGLOBULIN G
     Indication: Chronic inflammatory demyelinating polyradiculoneuropathy
     Dosage: 210 G RAM (S) OVER 5 DAYS INTRAVENOUS ?
     Route: 042
     Dates: start: 20240116, end: 20240122

REACTIONS (5)
  - Headache [None]
  - Nausea [None]
  - Dizziness [None]
  - Abdominal pain [None]
  - Depressed level of consciousness [None]

NARRATIVE: CASE EVENT DATE: 20240122
